FAERS Safety Report 15121592 (Version 3)
Quarter: 2018Q4

REPORT INFORMATION
  Report Type: Spontaneous
  Country: GB (occurrence: GB)
  Receive Date: 20180709
  Receipt Date: 20181003
  Transmission Date: 20190204
  Serious: Yes (Hospitalization, Other)
  Sender: FDA-Public Use
  Company Number: GB-NOVOPROD-609395

PATIENT
  Age: 36 Year
  Sex: Female

DRUGS (1)
  1. NOVORAPID [Suspect]
     Active Substance: INSULIN ASPART
     Indication: TYPE 1 DIABETES MELLITUS
     Dosage: UNK (VARIABLE)
     Route: 058

REACTIONS (2)
  - Diabetic ketoacidosis [Unknown]
  - Product leakage [Unknown]

NARRATIVE: CASE EVENT DATE: 20180626
